FAERS Safety Report 24124329 (Version 1)
Quarter: 2024Q3

REPORT INFORMATION
  Report Type: Spontaneous
  Country: ES (occurrence: ES)
  Receive Date: 20240723
  Receipt Date: 20240723
  Transmission Date: 20241016
  Serious: Yes (Other)
  Sender: ABBVIE
  Company Number: None

PATIENT
  Age: 53 Year
  Sex: Male

DRUGS (1)
  1. RINVOQ [Suspect]
     Active Substance: UPADACITINIB
     Indication: Dermatitis atopic
     Dosage: 30 MG /DAY?28 TABLETS
     Route: 048
     Dates: start: 20240112, end: 20240718

REACTIONS (1)
  - Penile dysplasia [Recovering/Resolving]

NARRATIVE: CASE EVENT DATE: 20240626
